FAERS Safety Report 7004030-5 (Version None)
Quarter: 2010Q3

REPORT INFORMATION
  Report Type: 
  Country: None (occurrence: None)
  Receive Date: 20100920
  Receipt Date: 20100121
  Transmission Date: 20110219
  Serious: No
  Sender: FDA-Public Use
  Company Number: US-WYE-H13121510

PATIENT
  Sex: Male
  Weight: 56.75 kg

DRUGS (2)
  1. PRISTIQ [Suspect]
     Indication: DEPRESSION
     Dosage: 50 MG - FREQUENCY UNSPECIFIED
     Route: 048
     Dates: start: 20100120
  2. LAMOTRIGINE [Concomitant]

REACTIONS (3)
  - FATIGUE [None]
  - INSOMNIA [None]
  - YAWNING [None]
